FAERS Safety Report 4850117-2 (Version None)
Quarter: 2005Q4

REPORT INFORMATION
  Report Type: 
  Country: None (occurrence: None)
  Receive Date: 20051123
  Receipt Date: 20041113
  Transmission Date: 20060501
  Serious: Yes (Other)
  Sender: FDA-Public Use
  Company Number: 2004079925

PATIENT
  Age: 54 Year
  Sex: Female

DRUGS (2)
  1. LIPITOR [Suspect]
     Indication: LIPIDS INCREASED
     Dosage: 10 MG (10 MG, 1 IN 1 D)
     Dates: start: 20040501, end: 20040831
  2. CHLORTHALIDONE [Concomitant]

REACTIONS (2)
  - BLOOD CREATINE PHOSPHOKINASE INCREASED [None]
  - MYALGIA [None]
